FAERS Safety Report 5094962-X (Version None)
Quarter: 2006Q3

REPORT INFORMATION
  Report Type: 
  Country: None (occurrence: None)
  Receive Date: 20060901
  Receipt Date: 20060404
  Transmission Date: 20061208
  Serious: Yes (Hospitalization, Other)
  Sender: FDA-Public Use
  Company Number: PHFR2006GB01360

PATIENT
  Age: 61 Year
  Sex: Male
  Weight: 98.43 kg

DRUGS (11)
  1. ZOMETA [Suspect]
     Indication: GASTROINTESTINAL CARCINOMA
     Dosage: 4 MG, QMO
     Route: 042
     Dates: start: 20040201, end: 20060201
  2. METHADONE HCL [Concomitant]
     Indication: PAIN
     Dosage: 17 ML, TID
     Route: 048
  3. ISTIN [Concomitant]
     Indication: HYPERTENSION
     Dosage: 10 MG, QD
     Route: 048
  4. ENALAPRIL [Concomitant]
     Indication: HYPERTENSION
     Dosage: 5 MG, QD
  5. GTN-S [Concomitant]
     Indication: ANGINA PECTORIS
     Dosage: 2 OT, PRN
  6. GLICLAZIDE [Concomitant]
     Indication: DIABETES MELLITUS NON-INSULIN-DEPENDENT
     Dosage: 80 MG, QD
     Route: 048
  7. MELOXICAM [Concomitant]
     Indication: PAIN
     Dosage: 15 MG, QD
     Route: 048
  8. AMITRIPTYLINE HCL [Concomitant]
     Indication: PAIN
     Dosage: 150 MG, QD
     Route: 048
  9. MOVICOL [Concomitant]
     Indication: CONSTIPATION
  10. CO-DANTHRAMER [Concomitant]
     Indication: CONSTIPATION
  11. SODIUM SULFATE [Concomitant]
     Indication: CONSTIPATION

REACTIONS (6)
  - BONE DEBRIDEMENT [None]
  - IMPAIRED HEALING [None]
  - ORAL DISCHARGE [None]
  - OSTEONECROSIS [None]
  - PAIN IN JAW [None]
  - TOOTH EXTRACTION [None]
